FAERS Safety Report 20707723 (Version 1)
Quarter: 2022Q2

REPORT INFORMATION
  Report Type: Spontaneous
  Country: CA (occurrence: CA)
  Receive Date: 20220413
  Receipt Date: 20220413
  Transmission Date: 20220721
  Serious: Yes (Other)
  Sender: FDA-Public Use
  Company Number: CA-JNJFOC-20220419126

PATIENT
  Age: 37 Year
  Sex: Male

DRUGS (7)
  1. IMODIUM [Suspect]
     Active Substance: LOPERAMIDE HYDROCHLORIDE
     Indication: Product used for unknown indication
     Route: 065
  2. COSENTYX [Suspect]
     Active Substance: SECUKINUMAB
     Indication: Ankylosing spondylitis
     Route: 058
  3. ACETAMINOPHEN [Concomitant]
     Active Substance: ACETAMINOPHEN
     Route: 048
  4. BETAMETHASONE [Concomitant]
     Active Substance: BETAMETHASONE
     Route: 065
  5. BETAMETHASONE VALERATE [Concomitant]
     Active Substance: BETAMETHASONE VALERATE
  6. ENBREL [Concomitant]
     Active Substance: ETANERCEPT
     Route: 058
  7. ERELZI [Concomitant]
     Active Substance: ETANERCEPT-SZZS
     Route: 058

REACTIONS (9)
  - Haematochezia [Unknown]
  - Abdominal pain lower [Unknown]
  - Bacterial infection [Unknown]
  - Peripheral swelling [Unknown]
  - Discomfort [Unknown]
  - Pain [Unknown]
  - Feeling abnormal [Unknown]
  - Diarrhoea [Unknown]
  - Constipation [Unknown]
